FAERS Safety Report 6027496-6 (Version None)
Quarter: 2009Q1

REPORT INFORMATION
  Report Type: 
  Country: None (occurrence: None)
  Receive Date: 20090105
  Receipt Date: 20081222
  Transmission Date: 20090719
  Serious: Yes (Death, Life-Threatening, Hospitalization)
  Sender: FDA-Public Use
  Company Number: CZ-ROCHE-604837

PATIENT
  Sex: Male
  Weight: 65 kg

DRUGS (8)
  1. XELODA [Suspect]
     Indication: DRUG USE FOR UNKNOWN INDICATION
     Route: 048
     Dates: start: 20081031, end: 20081113
  2. ZOMETA [Concomitant]
     Dosage: INTRAVENOUS DRIP
     Route: 042
     Dates: start: 20081031
  3. SEDUXEN [Concomitant]
     Route: 030
     Dates: start: 20081031
  4. ALOXI [Concomitant]
     Dosage: INTRAVENOUS DRIP
     Route: 042
     Dates: start: 20081031
  5. DEXONA [Concomitant]
     Dosage: INTRAVENOUS DRIP
     Route: 042
     Dates: start: 20081031
  6. CISPLATIN [Concomitant]
     Dosage: DOSE: 50 MG, 50 MG, 40 MG. INTRAVENOUS DRIP
     Route: 042
     Dates: start: 20081031
  7. MANITOL [Concomitant]
     Dosage: INTRAVENOUS DRIP
     Route: 042
     Dates: start: 20081031
  8. ZOFRAN [Concomitant]
     Dates: start: 20081031

REACTIONS (6)
  - ABDOMINAL PAIN [None]
  - DIARRHOEA [None]
  - ELECTROLYTE IMBALANCE [None]
  - FATIGUE [None]
  - LEUKOPENIA [None]
  - PYREXIA [None]
